FAERS Safety Report 7545095-1 (Version None)
Quarter: 2011Q2

REPORT INFORMATION
  Report Type: 
  Country: None (occurrence: None)
  Receive Date: 20110610
  Receipt Date: 20110610
  Transmission Date: 20111010
  Serious: Yes (Hospitalization)
  Sender: FDA-Public Use
  Company Number: None

PATIENT
  Age: 66 Year
  Sex: Male
  Weight: 53.978 kg

DRUGS (1)
  1. CARVEDILOL [Suspect]
     Indication: CARDIAC FAILURE CONGESTIVE
     Dosage: 9.75 BID PO
     Route: 048
     Dates: start: 20110418, end: 20110428

REACTIONS (3)
  - BODY TEMPERATURE INCREASED [None]
  - HICCUPS [None]
  - IMMUNE SYSTEM DISORDER [None]
